FAERS Safety Report 5814008-2 (Version None)
Quarter: 2008Q3

REPORT INFORMATION
  Report Type: 
  Country: None (occurrence: None)
  Receive Date: 20080715
  Receipt Date: 20080630
  Transmission Date: 20090109
  Serious: Yes (Death)
  Sender: FDA-Public Use
  Company Number: 14613

PATIENT
  Age: 52 Year
  Sex: Male

DRUGS (1)
  1. MORPHINE SULFATE ER 60 MG TABS (ETHEX CORPORATION) [Suspect]
     Dosage: UNKNOWN ORALLY
     Route: 048
     Dates: start: 20080301, end: 20080501

REACTIONS (2)
  - PHARMACEUTICAL PRODUCT COMPLAINT [None]
  - RESPIRATORY DISORDER [None]
